FAERS Safety Report 11321098 (Version 1)
Quarter: 2015Q3

REPORT INFORMATION
  Report Type: Spontaneous
  Country: FR (occurrence: FR)
  Receive Date: 20150729
  Receipt Date: 20150729
  Transmission Date: 20151125
  Serious: Yes (Hospitalization)
  Sender: FDA-Public Use
  Company Number: FR-HOSPIRA-2819331

PATIENT
  Age: 74 Year
  Sex: Female
  Weight: 49 kg

DRUGS (7)
  1. ZOPHREN                            /00955301/ [Concomitant]
     Active Substance: ONDANSETRON
     Indication: PRODUCT USED FOR UNKNOWN INDICATION
     Route: 042
     Dates: start: 20070123, end: 20070123
  2. PREDNISOLONE SODIUM SULFOBENZOATE [Suspect]
     Active Substance: PREDNISOLONE SODIUM METAZOATE
     Indication: OVARIAN CANCER
     Route: 042
     Dates: start: 20070123, end: 20070123
  3. POLARAMINE [Suspect]
     Active Substance: DEXCHLORPHENIRAMINE MALEATE
     Indication: OVARIAN CANCER
     Route: 042
     Dates: start: 20070123, end: 20070123
  4. TAXOL [Suspect]
     Active Substance: PACLITAXEL
     Indication: OVARIAN CANCER
     Route: 042
     Dates: start: 20070123, end: 20070123
  5. CARBOPLATIN TEVA [Suspect]
     Active Substance: CARBOPLATIN
     Indication: OVARIAN CANCER
     Route: 042
     Dates: start: 20070123, end: 20070123
  6. AZANTAC [Suspect]
     Active Substance: RANITIDINE HYDROCHLORIDE
     Indication: OVARIAN CANCER
     Dosage: DAILY
     Route: 042
  7. SOLU-MEDROL [Concomitant]
     Active Substance: METHYLPREDNISOLONE SODIUM SUCCINATE
     Indication: PRODUCT USED FOR UNKNOWN INDICATION
     Dosage: DAILY

REACTIONS (7)
  - Hypersensitivity [Recovered/Resolved]
  - Blood pressure increased [None]
  - Sense of oppression [Recovered/Resolved]
  - Erythema [Recovered/Resolved]
  - Pruritus [Recovered/Resolved]
  - Vomiting [Recovered/Resolved]
  - Formication [Recovered/Resolved]

NARRATIVE: CASE EVENT DATE: 20070123
